FAERS Safety Report 6544261-1 (Version None)
Quarter: 2010Q1

REPORT INFORMATION
  Report Type: 
  Country: None (occurrence: None)
  Receive Date: 20100119
  Receipt Date: 20100119
  Transmission Date: 20100710
  Serious: Yes (Other)
  Sender: FDA-Public Use
  Company Number: None

PATIENT
  Sex: Female
  Weight: 20.4119 kg

DRUGS (1)
  1. MOTRIN  TAB [Suspect]
     Indication: PYREXIA
     Dosage: 1 AND 1/2 TABLETS 150 MG EVERY 6-8 HOURS PO, ONE DOSAGE
     Route: 048
     Dates: start: 20100115, end: 20100115

REACTIONS (2)
  - PRODUCT QUALITY ISSUE [None]
  - VOMITING [None]
